FAERS Safety Report 20032775 (Version 7)
Quarter: 2023Q4

REPORT INFORMATION
  Report Type: Report from Study
  Country: CH (occurrence: CH)
  Receive Date: 20211104
  Receipt Date: 20231206
  Transmission Date: 20240110
  Serious: Yes (Hospitalization)
  Sender: FDA-Public Use
  Company Number: CH-ABBVIE-20K-151-3587353-00

PATIENT
  Age: 64 Year
  Sex: Female
  Weight: 88 kg

DRUGS (19)
  1. SKYRIZI [Suspect]
     Active Substance: RISANKIZUMAB-RZAA
     Indication: Psoriasis
     Route: 058
     Dates: start: 20200529, end: 20200626
  2. SKYRIZI [Suspect]
     Active Substance: RISANKIZUMAB-RZAA
     Route: 058
     Dates: start: 20200918, end: 20201216
  3. Optiderm [Concomitant]
     Indication: Dry skin
     Dosage: F CR?ME?FREQUENCY TEXT: AS NEEDED
     Route: 061
     Dates: start: 202104
  4. BETAMETHASONE [Concomitant]
     Active Substance: BETAMETHASONE\BETAMETHASONE DIPROPIONATE
     Indication: Psoriasis
     Route: 061
     Dates: start: 20210107
  5. ANTIDRY BATH [Concomitant]
     Indication: Psoriasis
     Route: 061
     Dates: start: 202105
  6. ANTIDRY BATH [Concomitant]
     Indication: Psoriasis
     Route: 061
     Dates: start: 2016, end: 202001
  7. UREA [Concomitant]
     Active Substance: UREA
     Indication: Psoriasis
     Dosage: LIPOLOTIO
     Route: 061
     Dates: start: 20200107
  8. BETAHISTINE [Concomitant]
     Active Substance: BETAHISTINE
     Indication: Deafness
     Dosage: FREQUENCY TEXT: 1-0-0-1
     Route: 048
     Dates: start: 2010
  9. Optiderm [Concomitant]
     Indication: Dry skin
     Dosage: 30 MG/G MACROGOL-6- LAURYLETHER RESP. 50 MG/G UREA
     Route: 061
     Dates: start: 202104
  10. ENSTILAR [Concomitant]
     Active Substance: BETAMETHASONE DIPROPIONATE\CALCIPOTRIENE HYDRATE
     Indication: Psoriasis
     Dosage: FOAM
     Route: 061
     Dates: start: 20200107
  11. IXEKIZUMAB [Suspect]
     Active Substance: IXEKIZUMAB
     Indication: Psoriasis
     Route: 065
     Dates: start: 202112, end: 202202
  12. BUTYLSCOPOLAMINE BROMIDE [Concomitant]
     Active Substance: BUTYLSCOPOLAMINE BROMIDE
     Indication: Abdominal pain
     Dosage: AS NEEDED
     Dates: start: 20200602
  13. NEOTIGASON [Concomitant]
     Active Substance: ACITRETIN
     Indication: Psoriasis
     Dates: start: 20200107, end: 20200520
  14. Actinica [Concomitant]
     Indication: Prophylaxis
     Dosage: SUNSCREEN
     Route: 061
  15. Bioflorin [Concomitant]
     Indication: Diarrhoea
     Dosage: FREQUENCY TEXT: AS NEEDED
  16. PROTOPIC [Concomitant]
     Active Substance: TACROLIMUS
     Indication: Skin plaque
     Dosage: AS NEEDED
     Route: 061
     Dates: start: 20200629
  17. CALCIPOTRIOLUM [Concomitant]
     Indication: Psoriasis
     Route: 061
     Dates: start: 20210107
  18. DAFALGAN [Concomitant]
     Active Substance: ACETAMINOPHEN
     Indication: Back pain
     Dosage: FREQUENCY TEXT: 1-0-0-1
     Route: 048
     Dates: start: 2014
  19. DAYLONG [Concomitant]
     Indication: Prophylaxis
     Dosage: ACTINICA, SUNSCREEN
     Route: 061

REACTIONS (11)
  - Cholecystitis [Recovered/Resolved]
  - Cholelithiasis [Recovered/Resolved]
  - Abdominal pain [Not Recovered/Not Resolved]
  - Diarrhoea [Not Recovered/Not Resolved]
  - Sleep disorder [Unknown]
  - Musculoskeletal chest pain [Not Recovered/Not Resolved]
  - Hepatic cyst [Not Recovered/Not Resolved]
  - Headache [Recovered/Resolved]
  - Helicobacter gastritis [Recovered/Resolved]
  - Superficial vein thrombosis [Recovering/Resolving]
  - Cholelithiasis [Recovered/Resolved]

NARRATIVE: CASE EVENT DATE: 20200531
